FAERS Safety Report 7357183-3 (Version None)
Quarter: 2011Q1

REPORT INFORMATION
  Report Type: 
  Country: None (occurrence: None)
  Receive Date: 20110317
  Receipt Date: 20110315
  Transmission Date: 20110831
  Serious: No
  Sender: FDA-Public Use
  Company Number: US-PFIZER INC-2011057627

PATIENT
  Sex: Female
  Weight: 86.168 kg

DRUGS (7)
  1. ACETYLSALICYLIC ACID [Concomitant]
     Dosage: UNK
  2. TEMAZEPAM [Concomitant]
     Indication: INSOMNIA
     Dosage: 30 MG, UNK
     Route: 048
  3. GEODON [Suspect]
     Indication: MENTAL DISORDER
     Dosage: 160 MG, 1X/DAY
     Route: 048
  4. SEROQUEL [Concomitant]
     Indication: INSOMNIA
     Dosage: 50 MG, UNK
     Route: 048
  5. REBETRON [Concomitant]
     Dosage: UNK
  6. ALPRAZOLAM [Concomitant]
     Indication: INSOMNIA
     Dosage: 1 MG, UNK
     Route: 048
  7. OMEPRAZOLE [Concomitant]
     Dosage: 20 MG, UNK
     Route: 048

REACTIONS (4)
  - DYSPNOEA [None]
  - ANXIETY [None]
  - RESPIRATORY TRACT CONGESTION [None]
  - TREMOR [None]
